FAERS Safety Report 11922815 (Version 3)
Quarter: 2016Q1

REPORT INFORMATION
  Report Type: Spontaneous
  Country: US (occurrence: US)
  Receive Date: 20160116
  Receipt Date: 20160328
  Transmission Date: 20160526
  Serious: Yes (Other)
  Sender: FDA-Public Use
  Company Number: US-AMGEN-USASP2016003667

PATIENT
  Age: 73 Year
  Sex: Female
  Weight: 122.45 kg

DRUGS (5)
  1. DIABETA                            /00145301/ [Concomitant]
     Dosage: 5 MG, WHEN NEEDED
     Route: 048
     Dates: start: 2015
  2. NORVASC [Concomitant]
     Active Substance: AMLODIPINE BESYLATE
     Dosage: 5 MG, WHEN NEEDED
     Route: 048
     Dates: start: 2015
  3. DIABETA                            /00145301/ [Concomitant]
     Indication: TYPE 2 DIABETES MELLITUS
     Dosage: 5 MG, ONCE A DAY
     Route: 048
     Dates: start: 2015, end: 2015
  4. PROCRIT [Suspect]
     Active Substance: ERYTHROPOIETIN
     Indication: ANAEMIA
     Dosage: 60,000 UNITS, WEEKLY
     Route: 058
     Dates: start: 201509
  5. NORVASC [Concomitant]
     Active Substance: AMLODIPINE BESYLATE
     Indication: HYPERTENSION
     Dosage: 5 MG, ONCE A DAY
     Route: 048
     Dates: start: 2015, end: 2015

REACTIONS (7)
  - Blood glucose decreased [Recovered/Resolved]
  - Weight decreased [Not Recovered/Not Resolved]
  - Unevaluable event [Unknown]
  - Blood count abnormal [Not Recovered/Not Resolved]
  - Underdose [Unknown]
  - Transfusion [Unknown]
  - Blood pressure decreased [Recovered/Resolved]

NARRATIVE: CASE EVENT DATE: 2015
